FAERS Safety Report 10517537 (Version 2)
Quarter: 2014Q4

REPORT INFORMATION
  Report Type: Spontaneous
  Country: NZ (occurrence: NZ)
  Receive Date: 20141014
  Receipt Date: 20141125
  Transmission Date: 20150528
  Serious: Yes (Congenital Anomaly)
  Sender: FDA-Public Use
  Company Number: NZ-ABBVIE-14P-118-1294367-00

PATIENT
  Sex: Female

DRUGS (1)
  1. EPILIM [Suspect]
     Active Substance: VALPROATE SODIUM
     Indication: MATERNAL EXPOSURE TIMING UNSPECIFIED
     Route: 064

REACTIONS (17)
  - Foot deformity [Unknown]
  - Fear [Unknown]
  - Disturbance in social behaviour [Unknown]
  - Foetal anticonvulsant syndrome [Unknown]
  - Decreased eye contact [Unknown]
  - Motor developmental delay [Unknown]
  - Developmental delay [Unknown]
  - Learning disorder [Unknown]
  - Congenital oral malformation [Unknown]
  - Hearing impaired [Unknown]
  - Tooth malformation [Unknown]
  - Congenital nose malformation [Unknown]
  - Dysmorphism [Unknown]
  - Cardiac murmur [Unknown]
  - Visual impairment [Unknown]
  - Foetal exposure during pregnancy [Unknown]
  - Autism [Unknown]
